FAERS Safety Report 23564381 (Version 1)
Quarter: 2024Q1

REPORT INFORMATION
  Report Type: Spontaneous
  Country: US (occurrence: US)
  Receive Date: 20240226
  Receipt Date: 20240226
  Transmission Date: 20240409
  Serious: Yes (Death, Other)
  Sender: FDA-Public Use
  Company Number: US-SPECGX-T202400639

PATIENT
  Age: 31 Year
  Sex: Male

DRUGS (2)
  1. FENTANYL CITRATE [Suspect]
     Active Substance: FENTANYL CITRATE
     Indication: Product used for unknown indication
     Dosage: UNK
     Route: 065
  2. METHAMPHETAMINE [Suspect]
     Active Substance: METHAMPHETAMINE
     Indication: Product used for unknown indication
     Dosage: UNK
     Route: 065

REACTIONS (10)
  - Brain death [Fatal]
  - Toxicity to various agents [Fatal]
  - Delirium [Unknown]
  - Rhabdomyolysis [Unknown]
  - Pneumonitis aspiration [Unknown]
  - Hepatotoxicity [Unknown]
  - Blister [Unknown]
  - Anion gap abnormal [Unknown]
  - Sympathomimetic effect [Unknown]
  - Agitation [Unknown]
